FAERS Safety Report 7749171-X (Version None)
Quarter: 2011Q3

REPORT INFORMATION
  Report Type: 
  Country: None (occurrence: None)
  Receive Date: 20110914
  Receipt Date: 20110909
  Transmission Date: 20111222
  Serious: Yes (Other)
  Sender: FDA-Public Use
  Company Number: US-BAYER-201023230NA

PATIENT
  Age: 43 Year
  Sex: Female

DRUGS (6)
  1. BETASERON [Suspect]
     Indication: MULTIPLE SCLEROSIS
     Route: 058
     Dates: start: 20090207, end: 20100327
  2. FLAGYL [Suspect]
  3. BETASERON [Suspect]
     Dosage: BETAJECT
     Route: 058
     Dates: start: 20100408
  4. CORTICOSTEROIDS [Concomitant]
     Indication: BACK DISORDER
     Route: 008
  5. CELEXA [Concomitant]
     Indication: ANXIETY
     Dosage: 20 MG, BID
     Route: 048
  6. DIAZEPAM [Concomitant]
     Indication: ANXIETY
     Dosage: 5 MG, PRN
     Route: 048

REACTIONS (19)
  - BAND SENSATION [None]
  - GAIT DISTURBANCE [None]
  - PAIN IN EXTREMITY [None]
  - FALL [None]
  - NAUSEA [None]
  - MULTIPLE SCLEROSIS [None]
  - PYREXIA [None]
  - DRUG HYPERSENSITIVITY [None]
  - RECTAL HAEMORRHAGE [None]
  - BACTERIAL INFECTION [None]
  - BACK PAIN [None]
  - PAIN [None]
  - INSOMNIA [None]
  - FUNGAL INFECTION [None]
  - MUSCULOSKELETAL CHEST PAIN [None]
  - ABDOMINAL MASS [None]
  - RASH [None]
  - ANXIETY [None]
  - HAEMORRHOIDS [None]
